FAERS Safety Report 14269479 (Version 4)
Quarter: 2018Q1

REPORT INFORMATION
  Report Type: Spontaneous
  Country: RU (occurrence: RU)
  Receive Date: 20171211
  Receipt Date: 20180316
  Transmission Date: 20180508
  Serious: Yes (Death, Other)
  Sender: FDA-Public Use
  Company Number: RU-REGENERON PHARMACEUTICALS, INC.-2017-28755

PATIENT

DRUGS (1)
  1. EYLEA [Suspect]
     Active Substance: AFLIBERCEPT
     Indication: RETINOPATHY OF PREMATURITY
     Dosage: 1 DF, ONCE
     Dates: start: 20170419, end: 20170419

REACTIONS (17)
  - Inguinal hernia [Fatal]
  - Pupil fixed [Unknown]
  - Product use in unapproved indication [Unknown]
  - Meningitis [Fatal]
  - Ascites [Fatal]
  - Gastrointestinal disorder [Fatal]
  - Iris vascular disorder [Unknown]
  - Pneumonia [Fatal]
  - Off label use [Unknown]
  - Hydrocephalus [Fatal]
  - Bronchopulmonary dysplasia [Fatal]
  - Retinal neovascularisation [Unknown]
  - Product use issue [Unknown]
  - Hepatitis [Fatal]
  - Necrotising colitis [Fatal]
  - Thrombocytopenia [Fatal]
  - Somatic symptom disorder [Fatal]
